FAERS Safety Report 7280421-2 (Version None)
Quarter: 2011Q1

REPORT INFORMATION
  Report Type: 
  Country: None (occurrence: None)
  Receive Date: 20110208
  Receipt Date: 20110202
  Transmission Date: 20110831
  Serious: Yes (Hospitalization)
  Sender: FDA-Public Use
  Company Number: FR-AMGEN-FRASP2010005084

PATIENT
  Age: 57 Year
  Sex: Female
  Weight: 126 kg

DRUGS (6)
  1. BISOPROLOL FUMARATE [Concomitant]
     Indication: HYPERTENSION
     Dosage: 10 A?G, QD
     Route: 048
  2. CRESTOR [Concomitant]
     Indication: HYPERCHOLESTEROLAEMIA
     Dosage: 5 A?G, QD
     Route: 048
  3. JANUVIA [Concomitant]
     Indication: DIABETES MELLITUS
     Dosage: 100 A?G, UNK
     Route: 048
  4. METFORMIN HCL [Concomitant]
     Indication: DIABETES MELLITUS
     Dosage: 500 A?G, BID
     Route: 048
  5. CINACALCET HYDROCHLORIDE [Suspect]
     Indication: HYPERPARATHYROIDISM PRIMARY
     Dosage: 30 A?G, UNK
     Route: 048
     Dates: start: 20100901, end: 20101006
  6. PRAZOSIN HCL [Concomitant]
     Indication: HYPERTENSION
     Dosage: 5 A?G, QD
     Route: 048

REACTIONS (3)
  - BLOOD PRESSURE ABNORMAL [None]
  - HYPERTENSION [None]
  - DISCOMFORT [None]
